FAERS Safety Report 5341853-2 (Version None)
Quarter: 2007Q2

REPORT INFORMATION
  Report Type: 
  Country: None (occurrence: None)
  Receive Date: 20070529
  Receipt Date: 20070529
  Transmission Date: 20071010
  Serious: Yes (Other)
  Sender: FDA-Public Use
  Company Number: None

PATIENT
  Age: 64 Year
  Sex: Female

DRUGS (1)
  1. DICLOXACILLIN [Suspect]
     Indication: SOFT TISSUE INFECTION
     Dosage: ORAL;250.0 MILLIGRAM
     Dates: start: 20070202, end: 20070207

REACTIONS (3)
  - DRUG ERUPTION [None]
  - RASH ERYTHEMATOUS [None]
  - RASH PRURITIC [None]
